FAERS Safety Report 9891281 (Version 7)
Quarter: 2014Q3

REPORT INFORMATION
  Report Type: Spontaneous
  Country: JP (occurrence: None)
  Receive Date: 20140207
  Receipt Date: 20140818
  Transmission Date: 20150326
  Serious: Yes (Death, Other)
  Sender: FDA-Public Use
  Company Number: ADR-2014-00194

PATIENT
  Age: 38 Year
  Sex: Female

DRUGS (1)
  1. GABALON [Suspect]
     Active Substance: BACLOFEN
     Indication: SPINAL DISORDER
     Route: 037
     Dates: end: 20140128

REACTIONS (4)
  - Death [None]
  - Bedridden [None]
  - Respiratory failure [None]
  - Pneumonia [None]

NARRATIVE: CASE EVENT DATE: 20140128
